FAERS Safety Report 18183631 (Version 1)
Quarter: 2020Q3

REPORT INFORMATION
  Report Type: Spontaneous
  Country: FR (occurrence: FR)
  Receive Date: 20200822
  Receipt Date: 20200822
  Transmission Date: 20201103
  Serious: Yes (Hospitalization)
  Sender: FDA-Public Use
  Company Number: NVSC2020FR230290

PATIENT
  Age: 57 Year
  Sex: Male
  Weight: 111 kg

DRUGS (5)
  1. CEFAZOLINE MYLAN [Suspect]
     Active Substance: CEFAZOLIN SODIUM
     Indication: POST PROCEDURAL SEPSIS
     Dosage: 2 G, QD
     Route: 042
     Dates: start: 20200507, end: 20200514
  2. RIMACTAN [Suspect]
     Active Substance: RIFAMPIN
     Indication: POST PROCEDURAL SEPSIS
     Dosage: 1200 MG, QD
     Route: 048
     Dates: start: 20200513, end: 20200520
  3. LEVOFLOXACIN SANDOZ [Suspect]
     Active Substance: LEVOFLOXACIN
     Indication: POST PROCEDURAL SEPSIS
     Dosage: 750 MG, QD
     Route: 048
     Dates: start: 20200513
  4. GENTAMICINE PANPHARMA [Suspect]
     Active Substance: GENTAMICIN
     Indication: PRODUCT USED FOR UNKNOWN INDICATION
     Dosage: 400 MG, QD
     Route: 042
     Dates: start: 20200426, end: 20200507
  5. COLCHICINE OPOCALCIUM [Suspect]
     Active Substance: COLCHICINE
     Indication: GOUT
     Dosage: 1 MG, QD
     Route: 048
     Dates: start: 20200512, end: 20200517

REACTIONS (1)
  - Acute kidney injury [Recovering/Resolving]

NARRATIVE: CASE EVENT DATE: 20200518
